FAERS Safety Report 15656966 (Version 1)
Quarter: 2018Q4

REPORT INFORMATION
  Report Type: Spontaneous
  Country: US (occurrence: US)
  Receive Date: 20181126
  Receipt Date: 20181126
  Transmission Date: 20190205
  Serious: Yes (Hospitalization)
  Sender: FDA-Public Use
  Company Number: None

PATIENT
  Age: 77 Year
  Sex: Male
  Weight: 67.5 kg

DRUGS (4)
  1. METFORMIN [Concomitant]
     Active Substance: METFORMIN HYDROCHLORIDE
  2. LANTUS [Concomitant]
     Active Substance: INSULIN GLARGINE
  3. CARFILZOMIB 27MG/M2 [Suspect]
     Active Substance: CARFILZOMIB
     Indication: PLASMA CELL MYELOMA
     Dosage: ?          QUANTITY:1 DOSE;OTHER FREQUENCY:ONCE PER WEEK;?INTRAVENOUS (NOT OTHERWISE SPECIFIED)?
     Route: 042
     Dates: start: 20181106, end: 20181106
  4. LISINOPRIL. [Concomitant]
     Active Substance: LISINOPRIL

REACTIONS (10)
  - Syncope [None]
  - Multiple organ dysfunction syndrome [None]
  - Cerebral disorder [None]
  - Pneumonia [None]
  - Malaise [None]
  - Dyspnoea [None]
  - Myocardial infarction [None]
  - Asthenia [None]
  - Sepsis [None]
  - Pain [None]

NARRATIVE: CASE EVENT DATE: 20181108
